FAERS Safety Report 16388045 (Version 1)
Quarter: 2019Q2

REPORT INFORMATION
  Report Type: Spontaneous
  Country: CN (occurrence: CN)
  Receive Date: 20190604
  Receipt Date: 20190604
  Transmission Date: 20190711
  Serious: Yes (Other)
  Sender: FDA-Public Use
  Company Number: CN-HQ SPECIALTY-CN-2019INT000146

PATIENT
  Age: 31 Year
  Sex: Female

DRUGS (1)
  1. CISPLATIN. [Suspect]
     Active Substance: CISPLATIN
     Indication: SQUAMOUS CELL CARCINOMA
     Dosage: 2X 50 MG/M2 ONCE EVERY 14 DAYS
     Route: 065

REACTIONS (1)
  - Pre-eclampsia [Unknown]
